FAERS Safety Report 11270944 (Version 1)
Quarter: 2015Q3

REPORT INFORMATION
  Report Type: Other
  Country: FR (occurrence: FR)
  Receive Date: 20150714
  Receipt Date: 20150714
  Transmission Date: 20151125
  Serious: Yes (Other)
  Sender: FDA-Public Use
  Company Number: FR-MYLANLABS-2015M1014493

PATIENT

DRUGS (1)
  1. BISOPROLOL MYLAN 10 MG COMPRIM? PELLICUL? S?CABLE [Suspect]
     Active Substance: BISOPROLOL
     Indication: ELECTROCARDIOGRAM QT PROLONGED
     Dosage: 5 MG, ONCE
     Route: 048
     Dates: start: 20150430, end: 20150430

REACTIONS (3)
  - Incorrect dose administered [Recovered/Resolved]
  - Medication error [Recovered/Resolved]
  - Asthenia [Recovered/Resolved]

NARRATIVE: CASE EVENT DATE: 20150430
